FAERS Safety Report 24444730 (Version 2)
Quarter: 2024Q4

REPORT INFORMATION
  Report Type: Report from Study
  Country: US (occurrence: US)
  Receive Date: 20241016
  Receipt Date: 20241017
  Transmission Date: 20250115
  Serious: No
  Sender: ROCHE
  Company Number: US-ROCHE-2992139

PATIENT
  Age: 38 Year
  Sex: Female

DRUGS (3)
  1. RITUXAN [Suspect]
     Active Substance: RITUXIMAB
     Indication: Warm autoimmune haemolytic anaemia
     Dosage: DATE OF SERVICE: 18/NOV/2021, 27/NOV/2021, 03/DEC/2021 AND 10/DEC/2021
     Route: 041
     Dates: start: 20211118
  2. RITUXAN [Suspect]
     Active Substance: RITUXIMAB
     Dosage: WEEKLY
     Route: 042
  3. PREDNISONE [Concomitant]
     Active Substance: PREDNISONE
     Dosage: 150 MG DAILY

REACTIONS (2)
  - Off label use [Unknown]
  - No adverse event [Unknown]
